FAERS Safety Report 5812241-7 (Version None)
Quarter: 2008Q3

REPORT INFORMATION
  Report Type: 
  Country: None (occurrence: None)
  Receive Date: 20080716
  Receipt Date: 20080707
  Transmission Date: 20090109
  Serious: Yes (Hospitalization)
  Sender: FDA-Public Use
  Company Number: US-MERCK-0807USA01151

PATIENT
  Age: 55 Year
  Sex: Female

DRUGS (8)
  1. JANUVIA [Suspect]
     Indication: TYPE 2 DIABETES MELLITUS
     Route: 048
     Dates: start: 20070701
  2. ZYRTEC [Concomitant]
     Route: 065
  3. BYETTA [Concomitant]
     Route: 065
  4. DARVOCET-N 100 [Concomitant]
     Route: 065
  5. NEURONTIN [Concomitant]
     Route: 065
  6. NAPROXEN [Concomitant]
     Route: 065
  7. ANTIMICROBIAL (UNSPECIFIED) [Concomitant]
     Route: 065
  8. METFORMIN [Concomitant]
     Route: 065
     Dates: start: 20080101, end: 20080101

REACTIONS (15)
  - ABDOMINAL PAIN UPPER [None]
  - BREAST CANCER [None]
  - DRUG INEFFECTIVE [None]
  - FOOD CRAVING [None]
  - HYPERTENSION [None]
  - MALAISE [None]
  - PAIN IN EXTREMITY [None]
  - PRURITUS [None]
  - PYREXIA [None]
  - SKIN SWELLING [None]
  - TREMOR [None]
  - URINARY TRACT INFECTION [None]
  - VISION BLURRED [None]
  - WEIGHT DECREASED [None]
  - WEIGHT INCREASED [None]
